FAERS Safety Report 4654487-X (Version None)
Quarter: 2005Q2

REPORT INFORMATION
  Report Type: 
  Country: None (occurrence: None)
  Receive Date: 20050404
  Receipt Date: 20041207
  Transmission Date: 20051028
  Serious: No
  Sender: FDA-Public Use
  Company Number: USA041285542

PATIENT
  Age: 20 Year
  Sex: Female

DRUGS (2)
  1. CYMBALTA [Suspect]
     Indication: DEPRESSION
     Dosage: 80 MG DAY
     Dates: start: 20041116
  2. ADDERALL 10 [Concomitant]

REACTIONS (1)
  - PRESCRIBED OVERDOSE [None]
